FAERS Safety Report 17345673 (Version 5)
Quarter: 2020Q1

REPORT INFORMATION
  Report Type: Report from Study
  Country: US (occurrence: US)
  Receive Date: 20200129
  Receipt Date: 20200318
  Transmission Date: 20200409
  Serious: No
  Sender: FDA-Public Use
  Company Number: NVSC2020US022800

PATIENT
  Age: 50 Year
  Sex: Female

DRUGS (1)
  1. GILENYA [Suspect]
     Active Substance: FINGOLIMOD HYDROCHLORIDE
     Indication: MULTIPLE SCLEROSIS
     Dosage: 0.5 MG, QD
     Route: 048
     Dates: start: 20150817

REACTIONS (4)
  - Memory impairment [Unknown]
  - Malaise [Unknown]
  - Feeling abnormal [Unknown]
  - Asthenia [Unknown]

NARRATIVE: CASE EVENT DATE: 20190129
